FAERS Safety Report 12933353 (Version 2)
Quarter: 2016Q4

REPORT INFORMATION
  Report Type: Spontaneous
  Country: DE (occurrence: DE)
  Receive Date: 20161111
  Receipt Date: 20161219
  Transmission Date: 20170207
  Serious: Yes (Congenital Anomaly, Other)
  Sender: FDA-Public Use
  Company Number: DE-TEVA-708852GER

PATIENT

DRUGS (2)
  1. COPAXONE [Suspect]
     Active Substance: GLATIRAMER ACETATE
     Dosage: 20 MILLIGRAM DAILY;
     Route: 058
     Dates: start: 1998
  2. COPAXONE [Suspect]
     Active Substance: GLATIRAMER ACETATE
     Indication: MULTIPLE SCLEROSIS
     Dosage: 20 MILLIGRAM DAILY;
     Route: 064
     Dates: start: 20111007

REACTIONS (3)
  - Foetal exposure during pregnancy [Unknown]
  - Noonan syndrome [Not Recovered/Not Resolved]
  - Ultrasound foetal abnormal [Not Recovered/Not Resolved]

NARRATIVE: CASE EVENT DATE: 20160623
